FAERS Safety Report 9759559 (Version 1)
Quarter: 2013Q4

REPORT INFORMATION
  Report Type: Spontaneous
  Country: US (occurrence: US)
  Receive Date: 20131216
  Receipt Date: 20131216
  Transmission Date: 20140711
  Serious: No
  Sender: FDA-Public Use
  Company Number: US-GILEAD-2010-0028134

PATIENT
  Age: 61 Year
  Sex: Female

DRUGS (5)
  1. LETAIRIS [Suspect]
     Indication: PULMONARY ARTERIAL HYPERTENSION
     Route: 048
     Dates: start: 20080223
  2. ADVAIR DISKUS [Concomitant]
  3. LASIX [Concomitant]
  4. NORVASC [Concomitant]
  5. FUROSEMIDE [Concomitant]

REACTIONS (1)
  - Hot flush [Not Recovered/Not Resolved]
